FAERS Safety Report 24947404 (Version 2)
Quarter: 2025Q2

REPORT INFORMATION
  Report Type: Spontaneous
  Country: US (occurrence: US)
  Receive Date: 20250210
  Receipt Date: 20250625
  Transmission Date: 20250717
  Serious: Yes (Other)
  Sender: ELI LILLY AND COMPANY
  Company Number: US-ELI_LILLY_AND_COMPANY-US202502005354

PATIENT
  Age: 57 Year
  Sex: Male
  Weight: 264 kg

DRUGS (8)
  1. TRULICITY [Suspect]
     Active Substance: DULAGLUTIDE
     Indication: Type 2 diabetes mellitus
     Dosage: 0.75 MG, WEEKLY (1/W)
     Route: 065
     Dates: start: 20230802, end: 20231110
  2. TRULICITY [Suspect]
     Active Substance: DULAGLUTIDE
     Indication: Weight control
     Dosage: 1.5 MG, WEEKLY (1/W)
     Route: 065
     Dates: start: 20240206, end: 20240206
  3. OZEMPIC [Suspect]
     Active Substance: SEMAGLUTIDE
     Indication: Type 2 diabetes mellitus
     Dosage: 0.5 MG, WEEKLY (1/W)
     Route: 065
     Dates: start: 20230705, end: 20230805
  4. OZEMPIC [Suspect]
     Active Substance: SEMAGLUTIDE
     Indication: Weight control
  5. ASPIRIN [Concomitant]
     Active Substance: ASPIRIN
     Indication: Pain
     Route: 065
     Dates: start: 20220919
  6. CREON [Concomitant]
     Active Substance: PANCRELIPASE AMYLASE\PANCRELIPASE LIPASE\PANCRELIPASE PROTEASE
     Indication: Pancreatitis
     Route: 065
     Dates: start: 20230901
  7. DICYCLOMINE [Concomitant]
     Active Substance: DICYCLOMINE HYDROCHLORIDE
     Indication: Irritable bowel syndrome
     Route: 065
     Dates: start: 20230705
  8. DULERA [Concomitant]
     Active Substance: FORMOTEROL FUMARATE DIHYDRATE\MOMETASONE FUROATE
     Indication: Asthma
     Route: 065
     Dates: start: 20240129

REACTIONS (1)
  - Impaired gastric emptying [Not Recovered/Not Resolved]

NARRATIVE: CASE EVENT DATE: 20221012
